FAERS Safety Report 4468252-X (Version None)
Quarter: 2004Q4

REPORT INFORMATION
  Report Type: 
  Country: None (occurrence: None)
  Receive Date: 20041004
  Receipt Date: 20040920
  Transmission Date: 20050328
  Serious: Yes (Hospitalization)
  Sender: FDA-Public Use
  Company Number: 2002087686DE

PATIENT
  Age: 51 Year
  Sex: Female
  Weight: 80 kg

DRUGS (3)
  1. CABERGOLINE [Suspect]
     Indication: RESTLESS LEGS SYNDROME
     Dosage: 2.5 MG, QD, ORAL
     Route: 048
     Dates: start: 20011207, end: 20011231
  2. METOPROLOL SUCCINATE [Concomitant]
  3. PHYSIOTENS    SOLVAY    (MOXONIDINE) [Concomitant]

REACTIONS (3)
  - ALCOHOL USE [None]
  - CIRCULATORY COLLAPSE [None]
  - SYNCOPE [None]
